FAERS Safety Report 7751074-1 (Version None)
Quarter: 2011Q3

REPORT INFORMATION
  Report Type: 
  Country: None (occurrence: None)
  Receive Date: 20110912
  Receipt Date: 20110829
  Transmission Date: 20111222
  Serious: Yes (Hospitalization)
  Sender: FDA-Public Use
  Company Number: AUR-APL-2011-04893

PATIENT
  Age: 49 Year
  Sex: Female
  Weight: 68.03 kg

DRUGS (6)
  1. ESTRADIOL [Concomitant]
  2. AMLODIPINE [Suspect]
     Indication: HYPERTENSION
     Dosage: 10 MG (10 MG, 1 IN 1 D), ORAL
     Route: 048
     Dates: start: 20110722
  3. LISINOPRIL [Suspect]
     Indication: HYPERTENSION
     Dosage: 10 MG (10 MG, 1 IN 1 D), ORAL
     Route: 048
     Dates: start: 20110722, end: 20110801
  4. VITACAL (VITACAL) [Suspect]
     Indication: SUPPLEMENTATION THERAPY
     Dosage: 4 DOSAGE FORMS (2 DOSAGE FORMS,2 IN 1 D),ORAL
     Route: 048
  5. CENTRUM SILVER (CENTRUM SILVER) [Suspect]
     Indication: SUPPLEMENTATION THERAPY
     Dosage: ORAL
     Route: 048
  6. TOCOPHERYL ACETATE (TOCOPHERYL ACETATE) [Suspect]
     Indication: SUPPLEMENTATION THERAPY
     Dosage: ORAL
     Route: 048

REACTIONS (4)
  - HYPERTENSION [None]
  - MUSCULAR WEAKNESS [None]
  - HYPERCALCAEMIA [None]
  - LETHARGY [None]
